FAERS Safety Report 15804869 (Version 1)
Quarter: 2019Q1

REPORT INFORMATION
  Report Type: Report from Study
  Country: None (occurrence: US)
  Receive Date: 20190109
  Receipt Date: 20190109
  Transmission Date: 20190417
  Serious: Yes (Other)
  Sender: FDA-Public Use
  Company Number: US-ABBVIE-18S-163-2603095-00

PATIENT
  Age: 88 Year
  Sex: Female
  Weight: 59.93 kg

DRUGS (12)
  1. MAGNESIUM [Suspect]
     Active Substance: MAGNESIUM
     Indication: BLOOD MAGNESIUM DECREASED
     Route: 048
     Dates: start: 2015
  2. NOVOLOG [Concomitant]
     Active Substance: INSULIN ASPART
     Indication: DIABETES MELLITUS
  3. METFORMIN [Concomitant]
     Active Substance: METFORMIN HYDROCHLORIDE
     Indication: DIABETES MELLITUS
  4. LOSARTAN. [Concomitant]
     Active Substance: LOSARTAN
     Indication: HYPERTENSION
  5. FUROSEMIDE. [Concomitant]
     Active Substance: FUROSEMIDE
     Indication: FLUID RETENTION
  6. ASPIRIN. [Concomitant]
     Active Substance: ASPIRIN
     Indication: PRODUCT USED FOR UNKNOWN INDICATION
  7. MULTIVITAMIN [Concomitant]
     Active Substance: VITAMINS
     Indication: VITAMIN SUPPLEMENTATION
  8. SYNTHROID [Suspect]
     Active Substance: LEVOTHYROXINE SODIUM
     Indication: HYPOTHYROIDISM
     Route: 048
  9. VERAPAMIL [Concomitant]
     Active Substance: VERAPAMIL HYDROCHLORIDE
     Indication: PAIN
  10. BASAGLAR [Concomitant]
     Active Substance: INSULIN GLARGINE
     Indication: DIABETES MELLITUS
  11. AMLODIPINE [Concomitant]
     Active Substance: AMLODIPINE BESYLATE
     Indication: HYPERTENSION
  12. VITAMIN C [Concomitant]
     Active Substance: ASCORBIC ACID
     Indication: VITAMIN SUPPLEMENTATION

REACTIONS (49)
  - Blindness unilateral [Not Recovered/Not Resolved]
  - Hypertension [Unknown]
  - Urinary incontinence [Unknown]
  - Hysterectomy [Unknown]
  - Retinal oedema [Not Recovered/Not Resolved]
  - Cataract [Recovered/Resolved]
  - Abdominal distension [Unknown]
  - Oedema peripheral [Unknown]
  - Type 2 diabetes mellitus [Unknown]
  - Arthralgia [Unknown]
  - Cholecystectomy [Unknown]
  - Urinary bladder suspension [Unknown]
  - Blood sodium decreased [Unknown]
  - Oedema [Unknown]
  - Dermoid cyst [Unknown]
  - Pollakiuria [Unknown]
  - Blood magnesium decreased [Not Recovered/Not Resolved]
  - Fatigue [Unknown]
  - Pain in extremity [Unknown]
  - Chest discomfort [Unknown]
  - Skin disorder [Unknown]
  - Herpes zoster [Unknown]
  - Neuropathy peripheral [Unknown]
  - Hiatus hernia [Unknown]
  - Nausea [Unknown]
  - Dizziness [Unknown]
  - Anaemia [Unknown]
  - Musculoskeletal pain [Unknown]
  - Scoliosis [Unknown]
  - Colon adenoma [Unknown]
  - Diarrhoea [Recovering/Resolving]
  - Pancreatic disorder [Unknown]
  - Iron deficiency anaemia [Unknown]
  - Gastrooesophageal reflux disease [Unknown]
  - Hyperlipidaemia [Unknown]
  - Abdominal pain [Unknown]
  - Hypomagnesaemia [Unknown]
  - Hypothyroidism [Unknown]
  - Cystocele [Unknown]
  - Vitamin D deficiency [Unknown]
  - Diverticulitis [Unknown]
  - Dyspnoea [Unknown]
  - Headache [Not Recovered/Not Resolved]
  - Seborrhoeic keratosis [Unknown]
  - Temporomandibular joint syndrome [Unknown]
  - Arthritis [Unknown]
  - Carpal tunnel syndrome [Unknown]
  - Osteopenia [Unknown]
  - Anorectal operation [Unknown]

NARRATIVE: CASE EVENT DATE: 2009
